FAERS Safety Report 14008375 (Version 1)
Quarter: 2017Q3

REPORT INFORMATION
  Report Type: Report from Study
  Country: US (occurrence: US)
  Receive Date: 20170925
  Receipt Date: 20170925
  Transmission Date: 20171128
  Serious: Yes (Other)
  Sender: FDA-Public Use
  Company Number: US-JNJFOC-20170907267

PATIENT
  Sex: Male

DRUGS (6)
  1. IMBRUVICA [Suspect]
     Active Substance: IBRUTINIB
     Indication: CHRONIC LYMPHOCYTIC LEUKAEMIA
     Route: 048
     Dates: start: 20170826, end: 20170913
  2. ASPIRIN. [Concomitant]
     Active Substance: ASPIRIN
  3. LEVOTHYROXIN [Concomitant]
     Active Substance: LEVOTHYROXINE
  4. METOPROLOL. [Concomitant]
     Active Substance: METOPROLOL
  5. CITALOPRAM [Concomitant]
     Active Substance: CITALOPRAM HYDROBROMIDE
  6. COLAZAL [Concomitant]
     Active Substance: BALSALAZIDE DISODIUM

REACTIONS (6)
  - Red blood cell count decreased [Unknown]
  - Polydipsia [Unknown]
  - Antibody test abnormal [Unknown]
  - Asthenia [Unknown]
  - Fatigue [Unknown]
  - White blood cell count decreased [Unknown]
